FAERS Safety Report 7094761-3 (Version None)
Quarter: 2010Q4

REPORT INFORMATION
  Report Type: 
  Country: None (occurrence: None)
  Receive Date: 20101110
  Receipt Date: 20101105
  Transmission Date: 20110411
  Serious: Yes (Hospitalization, Other)
  Sender: FDA-Public Use
  Company Number: BR-ABBOTT-10P-020-0676046-00

PATIENT
  Sex: Female
  Weight: 53 kg

DRUGS (3)
  1. HUMIRA [Suspect]
     Indication: RHEUMATOID ARTHRITIS
     Route: 058
     Dates: start: 20080811, end: 20100911
  2. HUMIRA [Suspect]
     Dates: start: 20101102
  3. CORTISONE [Concomitant]
     Indication: RHEUMATOID ARTHRITIS
     Route: 048
     Dates: start: 19990101

REACTIONS (5)
  - ABDOMINAL PAIN UPPER [None]
  - APPENDICITIS [None]
  - INCISIONAL HERNIA [None]
  - INJECTION SITE PAIN [None]
  - OPERATIVE HAEMORRHAGE [None]
